FAERS Safety Report 4890821-3 (Version None)
Quarter: 2006Q1

REPORT INFORMATION
  Report Type: 
  Country: None (occurrence: None)
  Receive Date: 20060123
  Receipt Date: 20060111
  Transmission Date: 20060701
  Serious: Yes (Other)
  Sender: FDA-Public Use
  Company Number: 2006006753

PATIENT
  Sex: Male
  Weight: 100.6985 kg

DRUGS (2)
  1. LIPITOR [Suspect]
     Indication: BLOOD CHOLESTEROL
     Dosage: 10 MG (10 MG, 1 IN 1 D)
  2. NORVASC [Concomitant]

REACTIONS (9)
  - DIARRHOEA [None]
  - ERUCTATION [None]
  - FEELING COLD [None]
  - FLATULENCE [None]
  - FREQUENT BOWEL MOVEMENTS [None]
  - HYPERTHYROIDISM [None]
  - PARAESTHESIA [None]
  - POST PROCEDURAL HYPOTHYROIDISM [None]
  - PRURITUS [None]
